FAERS Safety Report 13906881 (Version 1)
Quarter: 2017Q3

REPORT INFORMATION
  Report Type: Report from Study
  Country: US (occurrence: US)
  Receive Date: 20170825
  Receipt Date: 20170825
  Transmission Date: 20171127
  Serious: No
  Sender: FDA-Public Use
  Company Number: US-KAMADA LIMITED-2016US014126

PATIENT

DRUGS (24)
  1. ALBUTEROL SULFATE AND IPRATROPIUM BROMIDE [Concomitant]
     Active Substance: ALBUTEROL SULFATE\IPRATROPIUM BROMIDE
     Dosage: UNK, Q4HR
  2. AMITRIPTYLINE [Concomitant]
     Active Substance: AMITRIPTYLINE
  3. IMITREX [Concomitant]
     Active Substance: SUMATRIPTAN SUCCINATE
  4. LYRICA [Concomitant]
     Active Substance: PREGABALIN
  5. ZOCOR [Concomitant]
     Active Substance: SIMVASTATIN
  6. AMITIZA [Concomitant]
     Active Substance: LUBIPROSTONE
  7. METFORMIN [Concomitant]
     Active Substance: METFORMIN HYDROCHLORIDE
  8. ADALAT CC [Concomitant]
     Active Substance: NIFEDIPINE
  9. PREVACID [Concomitant]
     Active Substance: LANSOPRAZOLE
  10. SYMBICORT [Concomitant]
     Active Substance: BUDESONIDE\FORMOTEROL FUMARATE DIHYDRATE
  11. ALBUTEROL SULFATE AND IPRATROPIUM BROMIDE [Concomitant]
     Active Substance: ALBUTEROL SULFATE\IPRATROPIUM BROMIDE
     Dosage: UNK, BID
  12. ZESTORETIC [Concomitant]
     Active Substance: HYDROCHLOROTHIAZIDE\LISINOPRIL
  13. CELEBREX [Concomitant]
     Active Substance: CELECOXIB
  14. POTASSIUM CHLORIDE. [Concomitant]
     Active Substance: POTASSIUM CHLORIDE
  15. XARELTO [Concomitant]
     Active Substance: RIVAROXABAN
  16. ZYRTEC [Concomitant]
     Active Substance: CETIRIZINE HYDROCHLORIDE
  17. VENTOLIN [Concomitant]
     Active Substance: ALBUTEROL SULFATE
  18. LASIX [Concomitant]
     Active Substance: FUROSEMIDE
  19. SPIRIVA [Concomitant]
     Active Substance: TIOTROPIUM BROMIDE MONOHYDRATE
  20. FERROUS SULFATE. [Concomitant]
     Active Substance: FERROUS SULFATE
  21. KLONOPIN [Concomitant]
     Active Substance: CLONAZEPAM
  22. MORPHINE SULFATE. [Concomitant]
     Active Substance: MORPHINE SULFATE
  23. GLASSIA [Suspect]
     Active Substance: .ALPHA.1-PROTEINASE INHIBITOR HUMAN
     Indication: ALPHA-1 ANTI-TRYPSIN DEFICIENCY
     Dosage: 7 VIALS WITH 1000 MG A1PI/VIAL WEEKLY
     Route: 042
     Dates: start: 201607
  24. PROMETAZIN [Concomitant]
     Indication: NAUSEA
     Dosage: UNK, PRN

REACTIONS (3)
  - Nasopharyngitis [Recovering/Resolving]
  - Asthma [Unknown]
  - Cough [Unknown]

NARRATIVE: CASE EVENT DATE: 20161206
